FAERS Safety Report 5712129-6 (Version None)
Quarter: 2008Q2

REPORT INFORMATION
  Report Type: 
  Country: None (occurrence: None)
  Receive Date: 20080421
  Receipt Date: 20080421
  Transmission Date: 20081010
  Serious: Yes (Other)
  Sender: FDA-Public Use
  Company Number: None

PATIENT
  Age: 42 Year
  Sex: Female
  Weight: 113.8529 kg

DRUGS (2)
  1. CYMBALTA [Suspect]
     Indication: HYSTERECTOMY
     Dosage: 60 MG ONE DAILY PO
     Route: 048
     Dates: start: 20070501, end: 20080413
  2. CYMBALTA [Suspect]
     Indication: ROAD TRAFFIC ACCIDENT
     Dosage: 60 MG ONE DAILY PO
     Route: 048
     Dates: start: 20070501, end: 20080413

REACTIONS (23)
  - ABNORMAL BEHAVIOUR [None]
  - ABNORMAL DREAMS [None]
  - ANGER [None]
  - ANOREXIA [None]
  - BINGE EATING [None]
  - CHILLS [None]
  - CRYING [None]
  - DEPRESSED MOOD [None]
  - DRUG WITHDRAWAL SYNDROME [None]
  - FEELING ABNORMAL [None]
  - GASTRIC DISORDER [None]
  - HALLUCINATION, VISUAL [None]
  - HYPERHIDROSIS [None]
  - MOOD ALTERED [None]
  - PARAESTHESIA [None]
  - PHOTOPHOBIA [None]
  - RETCHING [None]
  - SOCIAL AVOIDANT BEHAVIOUR [None]
  - SUICIDAL IDEATION [None]
  - THINKING ABNORMAL [None]
  - TREMOR [None]
  - UNEVALUABLE EVENT [None]
  - WEIGHT INCREASED [None]
